FAERS Safety Report 24730506 (Version 4)
Quarter: 2025Q2

REPORT INFORMATION
  Report Type: Report from Study
  Country: US (occurrence: US)
  Receive Date: 20241213
  Receipt Date: 20250611
  Transmission Date: 20250717
  Serious: Yes (Hospitalization, Other)
  Sender: SUNOVION
  Company Number: US-SMPA-2024SPA006131

PATIENT

DRUGS (2)
  1. ORGOVYX [Suspect]
     Active Substance: RELUGOLIX
     Indication: Prostate cancer
     Dosage: 120 MG, QD
     Route: 048
     Dates: start: 20241209
  2. LUPRON [Suspect]
     Active Substance: LEUPROLIDE ACETATE
     Route: 065

REACTIONS (4)
  - Arrhythmia [Unknown]
  - Eye laser surgery [Unknown]
  - Blood pressure increased [Unknown]
  - Incorrect dose administered [Unknown]
